FAERS Safety Report 25368665 (Version 1)
Quarter: 2025Q2

REPORT INFORMATION
  Report Type: Spontaneous
  Country: US (occurrence: US)
  Receive Date: 20250528
  Receipt Date: 20250528
  Transmission Date: 20250716
  Serious: No
  Sender: ROCHE
  Company Number: US-ROCHE-10000290935

PATIENT
  Age: 17 Year
  Sex: Female
  Weight: 52.16 kg

DRUGS (2)
  1. XOLAIR [Suspect]
     Active Substance: OMALIZUMAB
     Indication: Asthma
     Dosage: 300 MG/ 2 ML
     Route: 058
     Dates: start: 202302
  2. XOLAIR [Suspect]
     Active Substance: OMALIZUMAB
     Indication: Food allergy
     Dosage: 300 MG/ 2 ML
     Route: 058
     Dates: start: 202304

REACTIONS (4)
  - Product dose omission issue [Unknown]
  - Needle issue [Unknown]
  - Device issue [Unknown]
  - No adverse event [Unknown]

NARRATIVE: CASE EVENT DATE: 20250516
